FAERS Safety Report 5906779-1 (Version None)
Quarter: 2008Q3

REPORT INFORMATION
  Report Type: 
  Country: None (occurrence: None)
  Receive Date: 20080930
  Receipt Date: 20080916
  Transmission Date: 20090109
  Serious: Yes (Disabling)
  Sender: FDA-Public Use
  Company Number: S08-FRA-01739-01

PATIENT
  Age: 85 Year
  Sex: Female
  Weight: 58 kg

DRUGS (5)
  1. MEMANTINE HCL [Suspect]
     Indication: DEMENTIA ALZHEIMER'S TYPE
     Dosage: 20 MG (10 MG, 2 IN 1 D), ORAL
     Route: 048
     Dates: end: 20080130
  2. ATHYMIL (MIANSERIN HYDROCHLORIDE) (10 MILLIGRAM) [Suspect]
     Indication: SLEEP DISORDER
     Dosage: 10 MG (10 MG, 1 IN 1 D), ORAL
     Route: 048
     Dates: end: 20080130
  3. ZOCOR [Suspect]
     Indication: LIPIDS ABNORMAL
     Dosage: 20 MG (20 MG, 1 IN 1 D), ORAL
     Route: 048
     Dates: end: 20080130
  4. RISPERDAL (RISPERIDONE) (1 MILLIGRAM) (RISPERIDONE) [Concomitant]
  5. EFFERALGAN CODEIN [Concomitant]

REACTIONS (12)
  - APHASIA [None]
  - DEHYDRATION [None]
  - ELECTROENCEPHALOGRAM ABNORMAL [None]
  - EPILEPSY [None]
  - FAECALOMA [None]
  - GAIT DISTURBANCE [None]
  - HYPERHIDROSIS [None]
  - HYPERTONIA [None]
  - METABOLIC SYNDROME [None]
  - MYOCLONUS [None]
  - SOMNOLENCE [None]
  - TREMOR [None]
